FAERS Safety Report 9690835 (Version 1)
Quarter: 2013Q4

REPORT INFORMATION
  Report Type: Spontaneous
  Country: US (occurrence: None)
  Receive Date: 20131114
  Receipt Date: 20131114
  Transmission Date: 20140711
  Serious: No
  Sender: FDA-Public Use
  Company Number: None

PATIENT
  Age: 61 Year
  Sex: Male
  Weight: 103 kg

DRUGS (6)
  1. BENEFIX [Suspect]
     Indication: HAEMORRHAGE
     Dates: start: 20131025, end: 20131025
  2. LISINOPRIL [Concomitant]
  3. LITHIUM [Concomitant]
  4. SIMVASTATIN [Concomitant]
  5. SYNTHROID [Concomitant]
  6. ULTRAM [Concomitant]

REACTIONS (2)
  - Hypersensitivity [None]
  - Urticaria [None]
